FAERS Safety Report 20082740 (Version 1)
Quarter: 2021Q4

REPORT INFORMATION
  Report Type: Spontaneous
  Country: RU (occurrence: RU)
  Receive Date: 20211117
  Receipt Date: 20211117
  Transmission Date: 20220304
  Serious: Yes (Other)
  Sender: FDA-Public Use
  Company Number: RU-PFIZER INC-202101530169

PATIENT

DRUGS (3)
  1. LYRICA [Suspect]
     Active Substance: PREGABALIN
     Dosage: 75 MG, 2X/DAY
  2. LYRICA [Suspect]
     Active Substance: PREGABALIN
     Dosage: 200 MG
  3. LYRICA [Suspect]
     Active Substance: PREGABALIN
     Dosage: 250 MG

REACTIONS (4)
  - Depressed level of consciousness [Unknown]
  - Lethargy [Unknown]
  - Dysarthria [Unknown]
  - Blood pressure decreased [Unknown]
